FAERS Safety Report 15473747 (Version 2)
Quarter: 2018Q4

REPORT INFORMATION
  Report Type: Spontaneous
  Country: GB (occurrence: GB)
  Receive Date: 20181008
  Receipt Date: 20181206
  Transmission Date: 20190205
  Serious: Yes (Hospitalization)
  Sender: FDA-Public Use
  Company Number: GB-PFIZER INC-2018394729

PATIENT
  Age: 37 Year
  Sex: Male

DRUGS (12)
  1. SMOFLIPID [Suspect]
     Active Substance: FISH OIL\MEDIUM-CHAIN TRIGLYCERIDES\OLIVE OIL\SOYBEAN OIL
     Indication: PARENTERAL NUTRITION
     Dosage: UNK
  2. SODIUM GLYCEROPHOSPHATE [Suspect]
     Active Substance: SODIUM GLYCEROPHOSPHATE
     Indication: PARENTERAL NUTRITION
     Dosage: UNK
  3. WATER FOR INJECTION [Suspect]
     Active Substance: WATER
     Indication: PARENTERAL NUTRITION
     Dosage: UNK
     Route: 065
  4. ADDAMEL N [CHROMIUM;COPPER;IODINE;IRON;MANGANESE;MOLYBDENUM;SELENIUM;S [Suspect]
     Active Substance: ELECTROLYTES NOS\MINERALS
     Indication: PARENTERAL NUTRITION
     Dosage: UNK
  5. POTASSIUM CHLORIDE. [Suspect]
     Active Substance: POTASSIUM CHLORIDE
     Indication: PARENTERAL NUTRITION
     Dosage: 150 MG/ML
  6. SODIUM CHLORIDE. [Suspect]
     Active Substance: SODIUM CHLORIDE
     Indication: PARENTERAL NUTRITION
     Dosage: UNK
  7. GLUCOSE 50% BAXTER [Suspect]
     Active Substance: DEXTROSE
     Indication: PARENTERAL NUTRITION
     Dosage: UNK
  8. AMINOVEN [Suspect]
     Active Substance: AMINO ACIDS
     Dosage: UNK
     Route: 042
  9. MAGNESIUM SULFATE. [Suspect]
     Active Substance: MAGNESIUM SULFATE
     Indication: PARENTERAL NUTRITION
     Dosage: UNK
  10. CALCIUM CHLORIDE. [Suspect]
     Active Substance: CALCIUM CHLORIDE
     Indication: PARENTERAL NUTRITION
     Dosage: UNK
  11. AMINOVEN [Suspect]
     Active Substance: AMINO ACIDS
     Indication: PARENTERAL NUTRITION
     Dosage: UNK
     Route: 042
  12. AMINOVEN [Suspect]
     Active Substance: AMINO ACIDS
     Dosage: UNK
     Route: 042

REACTIONS (5)
  - Tremor [Unknown]
  - Feeling of body temperature change [Unknown]
  - Pyrexia [Unknown]
  - Chills [Unknown]
  - Abdominal sepsis [Unknown]

NARRATIVE: CASE EVENT DATE: 20180901
